FAERS Safety Report 10221065 (Version 2)
Quarter: 2014Q2

REPORT INFORMATION
  Report Type: Report from Study
  Country: GR (occurrence: GR)
  Receive Date: 20140606
  Receipt Date: 20140626
  Transmission Date: 20141212
  Serious: No
  Sender: FDA-Public Use
  Company Number: GR-ASTELLAS-2014EU006782

PATIENT
  Age: 74 Year
  Sex: Male
  Weight: 54 kg

DRUGS (9)
  1. MICAFUNGIN [Suspect]
     Indication: ANTIFUNGAL PROPHYLAXIS
     Route: 065
     Dates: start: 20140328
  2. MICAFUNGIN [Suspect]
     Route: 042
     Dates: start: 20140330, end: 20140414
  3. LORDIN                             /00661202/ [Concomitant]
     Indication: INHIBITORY DRUG INTERACTION
     Route: 042
     Dates: start: 20140327, end: 20140414
  4. ZOVIRAX                            /00587301/ [Concomitant]
     Indication: ANTIBIOTIC THERAPY
     Route: 048
     Dates: start: 20140322, end: 20140414
  5. TARGOCID [Concomitant]
     Indication: ANTIBIOTIC THERAPY
     Route: 042
     Dates: start: 20140327, end: 20140414
  6. TAZOCIN [Concomitant]
     Indication: ANTIBIOTIC THERAPY
     Route: 042
     Dates: start: 20140327, end: 20140414
  7. SOLURIC [Concomitant]
     Indication: GOUTY ARTHRITIS
     Dosage: ANTIFUNGAL PROPHYLAXIS MCG/2ML
     Route: 048
     Dates: start: 20140320
  8. HYDRALAZINE [Concomitant]
     Indication: HYPERTENSION
     Route: 048
     Dates: start: 20140327
  9. ZAVEDOS [Concomitant]
     Indication: HAEMATOLOGICAL MALIGNANCY
     Dosage: 17 UNK, ONCE DAILY
     Route: 042
     Dates: start: 20140324, end: 20140330

REACTIONS (2)
  - Off label use [Unknown]
  - Intentional product misuse [Unknown]
